FAERS Safety Report 6832324-2 (Version None)
Quarter: 2010Q3

REPORT INFORMATION
  Report Type: 
  Country: None (occurrence: None)
  Receive Date: 20100712
  Receipt Date: 20100629
  Transmission Date: 20110219
  Serious: Yes (Hospitalization)
  Sender: FDA-Public Use
  Company Number: US-WATSON-2010-08605

PATIENT
  Sex: Female

DRUGS (9)
  1. GLIPIZIDE EXTENDED-RELEASE (WATSON LABORATORIES) [Suspect]
     Indication: PRODUCT USED FOR UNKNOWN INDICATION
     Dosage: UNK
     Route: 048
     Dates: start: 19990101, end: 20100416
  2. LISINOPRIL [Suspect]
     Indication: HYPERTENSION
     Dosage: 25 MG, DAILY
     Route: 048
     Dates: start: 19980101, end: 20100416
  3. VEGF TRAP-EYE (VEGF TRAP) [Suspect]
     Indication: MACULAR DEGENERATION
     Dosage: MASKED (VGFT 0.5MG OR 2.0MG OR RANIBIZUMAB 0.5MG)  (Q4WKSQ12 WKS/PRN), INTRAVITREAL
     Dates: start: 20090714
  4. VEGF TRAP-EYE (VEGF TRAP) [Suspect]
     Dosage: MASKED (VGFT 0.5MG OR 2.0MG OR RANIBIZUMAB 0.5MG)  (Q4WKS), INTRAVITREAL
     Dates: start: 20080710, end: 20090615
  5. VERAPAMIL ER [Suspect]
     Indication: HYPERTENSION
     Dosage: 240 MG, DAILY
     Route: 048
     Dates: start: 19980101, end: 20100416
  6. LIPITOR [Concomitant]
     Indication: HYPERCHOLESTEROLAEMIA
     Dosage: 10 MG, BID
     Route: 048
     Dates: start: 20010101
  7. ACTOS [Concomitant]
     Indication: TYPE 2 DIABETES MELLITUS
     Dosage: 15 MG, DAILY
     Route: 048
     Dates: start: 19980101
  8. ASPIRIN [Concomitant]
     Indication: PROPHYLAXIS
     Dosage: 81 MG, DAILY
     Route: 048
     Dates: start: 19920101, end: 20100428
  9. PLAVIX [Concomitant]
     Indication: CORONARY ARTERY DISEASE
     Dosage: 75 MG, DAILY
     Route: 048
     Dates: start: 20090701

REACTIONS (1)
  - HYPERKALAEMIA [None]
